FAERS Safety Report 8586731-0 (Version None)
Quarter: 2012Q3

REPORT INFORMATION
  Report Type: 
  Country: None (occurrence: None)
  Receive Date: 20120810
  Receipt Date: 20120806
  Transmission Date: 20120928
  Serious: Yes (Death, Hospitalization, Other)
  Sender: FDA-Public Use
  Company Number: FR-ABBOTT-12P-056-0965076-00

PATIENT
  Sex: Male

DRUGS (11)
  1. INTELENCE [Suspect]
     Indication: HIV INFECTION
     Dosage: FORM STRENGTH: 100MG
     Route: 048
     Dates: start: 20110527, end: 20110601
  2. ASPIRIN [Concomitant]
     Indication: PRODUCT USED FOR UNKNOWN INDICATION
  3. CRESTOR [Concomitant]
     Indication: PRODUCT USED FOR UNKNOWN INDICATION
  4. CLOMIPRAMINE HCL [Concomitant]
     Indication: PRODUCT USED FOR UNKNOWN INDICATION
  5. NORVIR [Suspect]
     Indication: HIV INFECTION
     Route: 048
     Dates: end: 20110601
  6. VIREAD [Suspect]
     Indication: HIV INFECTION
     Route: 048
     Dates: end: 20110527
  7. VIDEX [Suspect]
     Indication: HIV INFECTION
     Route: 048
     Dates: end: 20110527
  8. PREZISTA [Suspect]
     Indication: HIV INFECTION
     Route: 048
     Dates: end: 20110601
  9. OMEPRAZOLE [Concomitant]
     Indication: PRODUCT USED FOR UNKNOWN INDICATION
  10. DRUG NOS [Concomitant]
     Indication: PRODUCT USED FOR UNKNOWN INDICATION
  11. ISENTRESS [Suspect]
     Indication: HIV INFECTION
     Route: 048
     Dates: start: 20110527, end: 20110601

REACTIONS (17)
  - WEIGHT DECREASED [None]
  - HEPATIC FAILURE [None]
  - MULTI-ORGAN FAILURE [None]
  - TACHYCARDIA [None]
  - TACHYPNOEA [None]
  - HYPOTHERMIA [None]
  - HALLUCINATION, VISUAL [None]
  - RENAL FAILURE ACUTE [None]
  - CONFUSIONAL STATE [None]
  - GENERAL PHYSICAL HEALTH DETERIORATION [None]
  - HYPERLACTACIDAEMIA [None]
  - DYSPRAXIA [None]
  - HYPOTENSION [None]
  - FANCONI SYNDROME [None]
  - CARDIAC ARREST [None]
  - LIVEDO RETICULARIS [None]
  - PALLOR [None]
